FAERS Safety Report 15439458 (Version 1)
Quarter: 2018Q3

REPORT INFORMATION
  Report Type: Spontaneous
  Country: DE (occurrence: DE)
  Receive Date: 20180928
  Receipt Date: 20180928
  Transmission Date: 20181010
  Serious: Yes (Life-Threatening, Hospitalization, Disabling)
  Sender: FDA-Public Use
  Company Number: DE-TORRENT-00010422

PATIENT
  Age: 75 Year
  Sex: Female
  Weight: 94 kg

DRUGS (7)
  1. RAMIPRIL. [Concomitant]
     Active Substance: RAMIPRIL
     Indication: CORONARY ARTERY DISEASE
     Dosage: UNKNOWN
     Route: 048
  2. ASPIRIN. [Concomitant]
     Active Substance: ASPIRIN
     Indication: CORONARY ARTERY DISEASE
     Dosage: UNKNOWN
     Route: 048
  3. CLOPIDOGREL [Concomitant]
     Active Substance: CLOPIDOGREL BISULFATE
     Indication: CORONARY ARTERIAL STENT INSERTION
     Dosage: UNKNOWN
     Route: 048
  4. METOPROLOL. [Concomitant]
     Active Substance: METOPROLOL
     Indication: CORONARY ARTERY DISEASE
     Dosage: UNKNOWN
     Route: 048
  5. ENOXAPARIN [Concomitant]
     Active Substance: ENOXAPARIN
     Indication: PRODUCT USED FOR UNKNOWN INDICATION
     Dosage: UNKNOWN
     Route: 058
  6. RISPERIDON [Suspect]
     Active Substance: RISPERIDONE
     Indication: DELUSION
     Dosage: UNKNOWN
     Dates: start: 2013
  7. HCT [Concomitant]
     Active Substance: HYDROCHLOROTHIAZIDE
     Indication: CORONARY ARTERY DISEASE
     Dosage: UNKNOWN
     Route: 048

REACTIONS (2)
  - Deep vein thrombosis [Not Recovered/Not Resolved]
  - Pulmonary embolism [Not Recovered/Not Resolved]

NARRATIVE: CASE EVENT DATE: 20180803
